FAERS Safety Report 9857531 (Version 1)
Quarter: 2014Q1

REPORT INFORMATION
  Report Type: Spontaneous
  Country: JP (occurrence: JP)
  Receive Date: 20140131
  Receipt Date: 20140131
  Transmission Date: 20141002
  Serious: Yes (Other)
  Sender: FDA-Public Use
  Company Number: PHHY2014JP009070

PATIENT
  Age: 1 Year
  Sex: Female

DRUGS (3)
  1. CICLOSPORIN [Suspect]
     Route: 064
  2. PREDNISOLONE [Suspect]
     Route: 064
  3. AZATHIOPRINE [Suspect]
     Route: 064

REACTIONS (3)
  - Low birth weight baby [Unknown]
  - Premature baby [Unknown]
  - Foetal exposure during pregnancy [Unknown]
